FAERS Safety Report 9205292 (Version 8)
Quarter: 2013Q3

REPORT INFORMATION
  Report Type: Spontaneous
  Country: US (occurrence: US)
  Receive Date: 20130402
  Receipt Date: 20130823
  Transmission Date: 20140515
  Serious: Yes (Other)
  Sender: FDA-Public Use
  Company Number: US-PFIZER INC-2013104858

PATIENT
  Age: 59 Year
  Sex: Female
  Weight: 121 kg

DRUGS (25)
  1. LYRICA [Suspect]
     Indication: DIABETIC NEUROPATHY
     Dosage: 75 MG, 2X/DAY
     Route: 048
     Dates: start: 2009
  2. LYRICA [Suspect]
     Indication: NEUROPATHY PERIPHERAL
     Dosage: 150 MG (TWO CAPSULES OF 75MG EACH), 2X/DAY
     Route: 048
     Dates: start: 2011
  3. LYRICA [Suspect]
     Dosage: 75 MG, 2X/DAY
     Route: 048
     Dates: end: 201307
  4. PLAVIX [Concomitant]
     Indication: CARDIAC FAILURE CONGESTIVE
     Dosage: UNK
  5. ASPIRIN [Concomitant]
     Indication: CARDIAC FAILURE CONGESTIVE
     Dosage: UNK
  6. COREG [Concomitant]
     Dosage: UNK
  7. LASIX [Concomitant]
     Indication: CARDIAC FAILURE CONGESTIVE
     Dosage: UNK
  8. LASIX [Concomitant]
     Indication: HYPERTENSION
  9. NORVASC [Concomitant]
     Dosage: UNK
  10. CRESTOR [Concomitant]
     Indication: BLOOD CHOLESTEROL INCREASED
     Dosage: UNK
  11. METFORMIN [Concomitant]
     Dosage: UNK
  12. LANTUS [Concomitant]
     Dosage: UNK
  13. XANAX [Concomitant]
     Indication: ANXIETY
     Dosage: UNK
  14. XANAX [Concomitant]
     Indication: DEPRESSION
  15. ZOLOFT [Concomitant]
     Indication: ANXIETY
     Dosage: 100 MG, UNK
  16. ZOLOFT [Concomitant]
     Indication: DEPRESSION
  17. ADVAIR [Concomitant]
     Dosage: 250/50, UNK
  18. ALBUTEROL [Concomitant]
     Dosage: UNK
  19. ENALAPRIL [Concomitant]
     Indication: HYPERTENSION
     Dosage: UNK
  20. PREDNISONE [Concomitant]
     Dosage: UNK
  21. LABETALOL [Concomitant]
     Indication: HYPERTENSION
     Dosage: UNK
  22. ROBAXIN [Concomitant]
     Indication: ARTHRITIS
     Dosage: UNK, AS NEEDED
  23. PERCOCET [Concomitant]
     Indication: ARTHRITIS
     Dosage: UNK, AS NEEDED
  24. BUPROPION HYDROCHLORIDE [Concomitant]
     Indication: ANXIETY
     Dosage: UNK
  25. BUPROPION HYDROCHLORIDE [Concomitant]
     Indication: DEPRESSION

REACTIONS (12)
  - Myocardial infarction [Unknown]
  - Cardiac failure congestive [Unknown]
  - Hypotension [Unknown]
  - Paraesthesia [Unknown]
  - Diabetic neuropathy [Unknown]
  - Burning sensation [Unknown]
  - Muscle spasms [Unknown]
  - Back pain [Unknown]
  - Pain [Unknown]
  - Drug ineffective [Unknown]
  - Spondylitis [Unknown]
  - Bladder spasm [Unknown]
